FAERS Safety Report 11229528 (Version 1)
Quarter: 2015Q2

REPORT INFORMATION
  Report Type: Report from Study
  Country: TR (occurrence: TR)
  Receive Date: 20150630
  Receipt Date: 20150630
  Transmission Date: 20150821
  Serious: Yes (Other)
  Sender: FDA-Public Use
  Company Number: PHHY2015TR074325

PATIENT
  Age: 10 Year
  Sex: Female
  Weight: 49 kg

DRUGS (3)
  1. SOMATROPIN [Suspect]
     Active Substance: SOMATROPIN
     Indication: GROWTH HORMONE DEFICIENCY
     Dosage: 1.7 MG/ML, QD
     Route: 058
     Dates: start: 20150219, end: 20150617
  2. SOMATROPIN [Suspect]
     Active Substance: SOMATROPIN
     Dosage: 1.5 MG/ML QD
     Route: 065
     Dates: start: 20150617
  3. DECAPEPTYL//TRIPTORELIN ACETATE [Concomitant]
     Indication: PRODUCT USED FOR UNKNOWN INDICATION
     Route: 065

REACTIONS (1)
  - Drug level increased [Not Recovered/Not Resolved]

NARRATIVE: CASE EVENT DATE: 20150617
